FAERS Safety Report 9836257 (Version 3)
Quarter: 2014Q1

REPORT INFORMATION
  Report Type: Report from Study
  Country: CA (occurrence: CA)
  Receive Date: 20140123
  Receipt Date: 20140201
  Transmission Date: 20141002
  Serious: Yes (Other)
  Sender: FDA-Public Use
  Company Number: CA-ROCHE-1335951

PATIENT
  Age: 41 Year
  Sex: Male

DRUGS (1)
  1. VEMURAFENIB [Suspect]
     Indication: MALIGNANT MELANOMA
     Route: 048
     Dates: start: 20130403

REACTIONS (1)
  - Malignant melanoma in situ [Recovered/Resolved]
